FAERS Safety Report 12100529 (Version 1)
Quarter: 2016Q1

REPORT INFORMATION
  Report Type: Spontaneous
  Country: US (occurrence: US)
  Receive Date: 20160222
  Receipt Date: 20160222
  Transmission Date: 20160526
  Serious: No
  Sender: FDA-Public Use
  Company Number: US-BIOGEN-2016BI00191562

PATIENT
  Sex: Female

DRUGS (1)
  1. TECFIDERA [Suspect]
     Active Substance: DIMETHYL FUMARATE
     Indication: MULTIPLE SCLEROSIS
     Dosage: UNKNOWN DOSE AND FREQUENCY
     Route: 048

REACTIONS (3)
  - General symptom [Unknown]
  - Flushing [Unknown]
  - Multiple sclerosis relapse [Unknown]
